FAERS Safety Report 7153295-8 (Version None)
Quarter: 2010Q4

REPORT INFORMATION
  Report Type: 
  Country: None (occurrence: None)
  Receive Date: 20101130
  Receipt Date: 20101122
  Transmission Date: 20110411
  Serious: Yes (Death)
  Sender: FDA-Public Use
  Company Number: 2010US004771

PATIENT
  Age: 65 Year
  Sex: Male
  Weight: 45 kg

DRUGS (8)
  1. PROGRAF [Suspect]
     Indication: LUNG TRANSPLANT
     Dosage: 1.5 MG, UID/QD, ORAL
     Route: 048
     Dates: start: 20060510, end: 20101121
  2. PREDNISONE [Concomitant]
  3. EMORAND (EMORAND) [Concomitant]
  4. BACTRIM [Concomitant]
  5. CALCITROL (CALCIUM CARBONATE, ERGOCALCIFEROL, RETINOL) [Concomitant]
  6. MAGNESIUM OXIDE (MAGNESIUM OXIDE) [Concomitant]
  7. PROTONIX [Concomitant]
  8. FOSAMAX [Concomitant]

REACTIONS (1)
  - GASTRIC CANCER [None]
